FAERS Safety Report 16008759 (Version 6)
Quarter: 2019Q3

REPORT INFORMATION
  Report Type: Report from Study
  Country: US (occurrence: US)
  Receive Date: 20190226
  Receipt Date: 20190909
  Transmission Date: 20191004
  Serious: Yes (Death, Hospitalization)
  Sender: FDA-Public Use
  Company Number: US-ACTELION-A-US2019-186796

PATIENT
  Age: 71 Year
  Sex: Female
  Weight: 51.25 kg

DRUGS (6)
  1. AMLODIPINE [Concomitant]
     Active Substance: AMLODIPINE BESYLATE
  2. TRACLEER [Suspect]
     Active Substance: BOSENTAN
     Indication: PULMONARY ARTERIAL HYPERTENSION
     Dosage: 125 MG, BID
     Route: 048
  3. REVATIO [Concomitant]
     Active Substance: SILDENAFIL CITRATE
     Dosage: 10 UNK, TID
  4. ORENITRAM [Concomitant]
     Active Substance: TREPROSTINIL
     Dosage: UNK
  5. WARFARIN [Concomitant]
     Active Substance: WARFARIN
  6. ORENITRAM [Concomitant]
     Active Substance: TREPROSTINIL
     Dosage: 4 UNK, TID

REACTIONS (8)
  - Death [Fatal]
  - Concomitant disease aggravated [Recovering/Resolving]
  - Supraventricular tachycardia [Recovering/Resolving]
  - Condition aggravated [Recovering/Resolving]
  - Cardiac failure congestive [Recovering/Resolving]
  - Left ventricular failure [Recovering/Resolving]
  - Anxiety [Recovering/Resolving]
  - Rehabilitation therapy [Unknown]

NARRATIVE: CASE EVENT DATE: 20190207
